FAERS Safety Report 5908822-2 (Version None)
Quarter: 2008Q4

REPORT INFORMATION
  Report Type: 
  Country: None (occurrence: None)
  Receive Date: 20081006
  Receipt Date: 20081001
  Transmission Date: 20090506
  Serious: Yes (Other)
  Sender: FDA-Public Use
  Company Number: US-ASTRAZENECA-2008UW21155

PATIENT
  Age: 71 Year
  Sex: Female

DRUGS (3)
  1. ARIMIDEX [Suspect]
     Route: 048
     Dates: start: 20070101
  2. ZESTORETIC [Concomitant]
     Indication: HYPERTENSION
  3. TAPAZOLE [Concomitant]
     Indication: HYPERTHYROIDISM

REACTIONS (6)
  - ARTHRALGIA [None]
  - ARTHRITIS [None]
  - CHONDROPATHY [None]
  - FALL [None]
  - JOINT STIFFNESS [None]
  - JOINT SWELLING [None]
